FAERS Safety Report 4791076-0 (Version None)
Quarter: 2005Q4

REPORT INFORMATION
  Report Type: 
  Country: None (occurrence: None)
  Receive Date: 20051005
  Receipt Date: 20050923
  Transmission Date: 20060501
  Serious: Yes (Hospitalization)
  Sender: FDA-Public Use
  Company Number: DSA_27167_2005

PATIENT
  Age: 60 Year
  Sex: Male

DRUGS (1)
  1. TAVOR [Suspect]
     Dosage: 200 MG ONCE PO
     Route: 048
     Dates: start: 20050905, end: 20050905

REACTIONS (7)
  - BLOOD CREATINE PHOSPHOKINASE INCREASED [None]
  - DEPRESSED LEVEL OF CONSCIOUSNESS [None]
  - DEPRESSION [None]
  - INTENTIONAL DRUG MISUSE [None]
  - OVERDOSE [None]
  - PSYCHOTIC DISORDER [None]
  - SOMNOLENCE [None]
